FAERS Safety Report 9201799 (Version 1)
Quarter: 2013Q2

REPORT INFORMATION
  Report Type: Spontaneous
  Country: JP (occurrence: JP)
  Receive Date: 20130401
  Receipt Date: 20130401
  Transmission Date: 20140414
  Serious: Yes (Hospitalization)
  Sender: FDA-Public Use
  Company Number: JP-ROCHE-1195258

PATIENT
  Age: 44 Year
  Sex: Female
  Weight: 70 kg

DRUGS (5)
  1. TAMIFLU [Suspect]
     Indication: INFLUENZA
     Dosage: DOSAGE IS UNCERTAIN
     Route: 048
     Dates: start: 20130220, end: 20130222
  2. DEXTROMETHORPHAN HYDROBROMIDE [Concomitant]
     Indication: INFLUENZA
     Route: 048
     Dates: start: 20130220
  3. CISDYNE [Concomitant]
     Indication: INFLUENZA
     Route: 048
     Dates: start: 20130220
  4. CALONAL [Concomitant]
     Indication: INFLUENZA
     Route: 048
     Dates: start: 20130220, end: 20130220
  5. DOMPERIDONE [Concomitant]
     Indication: INFLUENZA
     Route: 048
     Dates: start: 20130220, end: 20130220

REACTIONS (1)
  - Colitis ischaemic [Recovered/Resolved]
